FAERS Safety Report 9934228 (Version 1)
Quarter: 2014Q1

REPORT INFORMATION
  Report Type: Spontaneous
  Country: NO (occurrence: NO)
  Receive Date: 20140228
  Receipt Date: 20140228
  Transmission Date: 20141002
  Serious: Yes (Other)
  Sender: FDA-Public Use
  Company Number: NO-JNJFOC-20140212083

PATIENT
  Sex: 0

DRUGS (1)
  1. METHYLPHENIDATE HYDROCHLORIDE [Suspect]
     Indication: ATTENTION DEFICIT/HYPERACTIVITY DISORDER
     Route: 048

REACTIONS (18)
  - Suicide attempt [Unknown]
  - Suicidal ideation [Unknown]
  - Intentional drug misuse [Unknown]
  - Depression [Unknown]
  - Psychotic disorder [Unknown]
  - Sleep disorder [Unknown]
  - Adverse drug reaction [Unknown]
  - Drug ineffective [Unknown]
  - Palpitations [Unknown]
  - Anxiety [Unknown]
  - Irritability [Unknown]
  - Decreased appetite [Unknown]
  - Nervousness [Unknown]
  - Nausea [Unknown]
  - Headache [Unknown]
  - Tic [Unknown]
  - Fatigue [Unknown]
  - Drug diversion [Unknown]
